FAERS Safety Report 13535824 (Version 1)
Quarter: 2017Q2

REPORT INFORMATION
  Report Type: Spontaneous
  Country: GB (occurrence: GB)
  Receive Date: 20170511
  Receipt Date: 20170511
  Transmission Date: 20170830
  Serious: Yes (Disabling, Other)
  Sender: FDA-Public Use
  Company Number: GB-AUROBINDO-AUR-APL-2017-33449

PATIENT
  Sex: Male

DRUGS (1)
  1. CIPROFLOXACIN FILM COATED TABLETS 500MG [Suspect]
     Active Substance: CIPROFLOXACIN
     Indication: PRODUCT USED FOR UNKNOWN INDICATION
     Dosage: 500 MG, TWO TIMES A DAY
     Route: 065

REACTIONS (4)
  - Pain [Unknown]
  - Muscle twitching [Unknown]
  - Palpitations [Unknown]
  - Muscle swelling [Unknown]
